FAERS Safety Report 26107408 (Version 1)
Quarter: 2025Q4

REPORT INFORMATION
  Report Type: Spontaneous
  Country: AE (occurrence: AE)
  Receive Date: 20251201
  Receipt Date: 20251201
  Transmission Date: 20260117
  Serious: Yes (Life-Threatening, Hospitalization, Other)
  Sender: SCIEGEN PHARMACEUTICALS INC
  Company Number: AE-SCIEGENP-2025SCLIT00378

PATIENT
  Age: 42 Year
  Sex: Male

DRUGS (3)
  1. DIVALPROEX SODIUM [Suspect]
     Active Substance: DIVALPROEX SODIUM
     Indication: Product used for unknown indication
     Dosage: 120 X 500 MG TABLETS EXTENDED RELEASE
     Route: 048
  2. ZOLPIDEM [Suspect]
     Active Substance: ZOLPIDEM TARTRATE
     Indication: Product used for unknown indication
     Route: 048
  3. ACETAMINOPHEN [Suspect]
     Active Substance: ACETAMINOPHEN
     Indication: Product used for unknown indication
     Route: 065

REACTIONS (9)
  - Hypoxia [Recovered/Resolved]
  - Depressed level of consciousness [Recovered/Resolved]
  - Neuromuscular toxicity [Unknown]
  - Myopathy toxic [Unknown]
  - Bezoar [Recovered/Resolved]
  - Extrapyramidal disorder [Unknown]
  - Hypotension [Recovered/Resolved]
  - Intentional overdose [Unknown]
  - Toxicity to various agents [Unknown]
